FAERS Safety Report 8613581-9 (Version None)
Quarter: 2012Q3

REPORT INFORMATION
  Report Type: 
  Country: None (occurrence: None)
  Receive Date: 20120823
  Receipt Date: 20120815
  Transmission Date: 20120928
  Serious: Yes (Hospitalization, Other)
  Sender: FDA-Public Use
  Company Number: CO-AMGEN-COLSP2012017236

PATIENT
  Age: 37 Year
  Sex: Male

DRUGS (3)
  1. ARAVA [Concomitant]
     Dosage: UNK
  2. ENBREL [Suspect]
     Indication: RHEUMATOID ARTHRITIS
     Dosage: 50 MG, WEEKLY
     Route: 058
     Dates: start: 20120214
  3. PREDNISOLONE [Concomitant]
     Dosage: UNK

REACTIONS (5)
  - IMMUNODEFICIENCY [None]
  - MALAISE [None]
  - ABDOMINAL PAIN [None]
  - GASTROENTERITIS [None]
  - ARTHRALGIA [None]
